FAERS Safety Report 18737956 (Version 1)
Quarter: 2021Q1

REPORT INFORMATION
  Report Type: Spontaneous
  Country: US (occurrence: US)
  Receive Date: 20210114
  Receipt Date: 20210114
  Transmission Date: 20210419
  Serious: Yes (Other)
  Sender: FDA-Public Use
  Company Number: US-SUN PHARMACEUTICAL INDUSTRIES LTD-2020R1-275201

PATIENT
  Age: 59 Year

DRUGS (1)
  1. BACTRIM DS [Suspect]
     Active Substance: SULFAMETHOXAZOLE\TRIMETHOPRIM
     Indication: PNEUMONIA
     Dosage: UNK, TID
     Route: 065

REACTIONS (3)
  - Obstructive nephropathy [Recovered/Resolved]
  - Calculus bladder [Unknown]
  - Acute kidney injury [Recovered/Resolved]
